FAERS Safety Report 7922371-1 (Version None)
Quarter: 2011Q4

REPORT INFORMATION
  Report Type: 
  Country: None (occurrence: None)
  Receive Date: 20111117
  Receipt Date: 20110119
  Transmission Date: 20120403
  Serious: No
  Sender: FDA-Public Use
  Company Number: US-AMGEN-USASP2011003651

PATIENT
  Age: 36 Year
  Sex: Female
  Weight: 93.424 kg

DRUGS (1)
  1. ENBREL [Suspect]
     Indication: PSORIASIS
     Dosage: 50 MG, Q2WK
     Route: 060

REACTIONS (3)
  - INJECTION SITE HAEMATOMA [None]
  - PYREXIA [None]
  - MALAISE [None]
